FAERS Safety Report 9746075 (Version 2)
Quarter: 2013Q4

REPORT INFORMATION
  Report Type: Spontaneous
  Country: FR (occurrence: FR)
  Receive Date: 20131211
  Receipt Date: 20131211
  Transmission Date: 20140711
  Serious: No
  Sender: FDA-Public Use
  Company Number: FR-GILEAD-2009-0023718

PATIENT
  Sex: Male

DRUGS (5)
  1. ATRIPLA [Suspect]
     Indication: HIV INFECTION
     Dates: start: 20090729
  2. TRUVADA [Suspect]
     Indication: HIV INFECTION
     Dates: start: 20080505
  3. SUSTIVA [Concomitant]
     Dates: start: 20090128
  4. SUSTIVA [Concomitant]
     Dates: start: 20080505
  5. RIFAMPICINE [Concomitant]
     Indication: TUBERCULOSIS
     Dates: end: 20090128

REACTIONS (2)
  - Dermatitis allergic [Recovered/Resolved]
  - Toxic skin eruption [Recovered/Resolved]
